FAERS Safety Report 5888768-9 (Version None)
Quarter: 2008Q3

REPORT INFORMATION
  Report Type: 
  Country: None (occurrence: None)
  Receive Date: 20080917
  Receipt Date: 20080917
  Transmission Date: 20090109
  Serious: No
  Sender: FDA-Public Use
  Company Number: None

PATIENT
  Sex: Female
  Weight: 181 kg

DRUGS (1)
  1. LANTUS [Suspect]
     Dosage: (DAILY)

REACTIONS (1)
  - WEIGHT INCREASED [None]
